FAERS Safety Report 5891124-0 (Version None)
Quarter: 2008Q3

REPORT INFORMATION
  Report Type: 
  Country: None (occurrence: None)
  Receive Date: 20080918
  Receipt Date: 20080918
  Transmission Date: 20090109
  Serious: Yes (Hospitalization)
  Sender: FDA-Public Use
  Company Number: None

PATIENT
  Age: 47 Year
  Sex: Male

DRUGS (10)
  1. LITHIUM CARBONATE [Suspect]
     Indication: BIPOLAR DISORDER
     Dosage: UNKNOWN BID PO
     Route: 048
  2. TYLENOL (CAPLET) [Concomitant]
  3. ATROVENT [Concomitant]
  4. PROVENTIL [Concomitant]
  5. DEPAKENE [Concomitant]
  6. INDOMETHACIN [Concomitant]
  7. NEXIUM [Concomitant]
  8. LEVAQUIN [Concomitant]
  9. ZOSYN [Concomitant]
  10. ZINC OXIDE [Concomitant]

REACTIONS (4)
  - BRAIN INJURY [None]
  - NEPHROGENIC DIABETES INSIPIDUS [None]
  - THERAPEUTIC AGENT TOXICITY [None]
  - THERAPEUTIC RESPONSE DECREASED [None]
